FAERS Safety Report 18495857 (Version 1)
Quarter: 2020Q4

REPORT INFORMATION
  Report Type: Report from Study
  Country: None (occurrence: DE)
  Receive Date: 20201112
  Receipt Date: 20201112
  Transmission Date: 20210114
  Serious: Yes (Other)
  Sender: FDA-Public Use
  Company Number: DE-ABBVIE-20K-062-3647845-00

PATIENT
  Sex: Male

DRUGS (3)
  1. IODINE. [Suspect]
     Active Substance: IODINE
     Indication: THERMAL BURN
     Route: 065
  2. PENICILLIN [PENICILLIN NOS] [Suspect]
     Active Substance: PENICILLIN
     Indication: THERMAL BURN
     Route: 065
  3. HUMIRA [Suspect]
     Active Substance: ADALIMUMAB
     Indication: JUVENILE IDIOPATHIC ARTHRITIS
     Route: 058
     Dates: start: 20141122, end: 201809

REACTIONS (9)
  - Gastritis [Recovered/Resolved]
  - Weight decreased [Unknown]
  - Suicidal ideation [Recovered/Resolved]
  - Burns second degree [Recovered/Resolved]
  - Drug hypersensitivity [Unknown]
  - Burns first degree [Recovered/Resolved]
  - Iodine allergy [Unknown]
  - Drug specific antibody present [Unknown]
  - Juvenile idiopathic arthritis [Recovered/Resolved]

NARRATIVE: CASE EVENT DATE: 2018
